FAERS Safety Report 6076214-4 (Version None)
Quarter: 2009Q1

REPORT INFORMATION
  Report Type: 
  Country: None (occurrence: None)
  Receive Date: 20090212
  Receipt Date: 20090130
  Transmission Date: 20090719
  Serious: Yes (Hospitalization)
  Sender: FDA-Public Use
  Company Number: AU-PFIZER INC-2009156408

PATIENT

DRUGS (15)
  1. ONDANSETRON HCL [Suspect]
     Dosage: UNK
  2. METRONIDAZOLE AND METRONIDAZOLE BENZOATE AND METRONIDAZOLE HYDROCHLORI [Suspect]
  3. TRIMETHOPRIM + SULFAMETHOXAZOLE [Suspect]
     Dosage: UNK
  4. PREDNISOLONE AND PREDNISOLONE STEAGLATE [Suspect]
  5. FRUSEMIDE [Suspect]
     Dosage: UNK
  6. OMEPRAZOLE [Suspect]
     Dosage: UNK
  7. CYCLOSPORINE [Suspect]
  8. PARACETAMOL [Suspect]
  9. ITRACONAZOLE [Suspect]
  10. MELPHALAN [Suspect]
     Indication: MYELOID LEUKAEMIA
  11. CLAVUCAR [Concomitant]
  12. NIFEDIPINE [Concomitant]
  13. METOCLOPRAMIDE [Concomitant]
  14. GENTAMICIN [Concomitant]
  15. CEPHALOTHIN [Concomitant]

REACTIONS (4)
  - ANAEMIA [None]
  - BLOOD AMYLASE INCREASED [None]
  - OEDEMA [None]
  - PANCREATITIS HAEMORRHAGIC [None]
